FAERS Safety Report 11255277 (Version 1)
Quarter: 2015Q3

REPORT INFORMATION
  Report Type: Spontaneous
  Country: US (occurrence: US)
  Receive Date: 20150709
  Receipt Date: 20150709
  Transmission Date: 20151125
  Serious: Yes (Other)
  Sender: FDA-Public Use
  Company Number: US-MPIJNJ-2012-03172

PATIENT
  Age: 57 Year
  Sex: Male

DRUGS (4)
  1. VELCADE [Suspect]
     Active Substance: BORTEZOMIB
     Dosage: UNK
  2. VELCADE [Suspect]
     Active Substance: BORTEZOMIB
     Indication: AMYLOIDOSIS
     Dosage: 1.3 MG/M2, UNK
     Route: 042
     Dates: start: 20120127, end: 20120203
  3. VELCADE [Suspect]
     Active Substance: BORTEZOMIB
     Dosage: UNK
  4. VELCADE [Suspect]
     Active Substance: BORTEZOMIB
     Dosage: UNK

REACTIONS (1)
  - Posterior reversible encephalopathy syndrome [Recovered/Resolved]

NARRATIVE: CASE EVENT DATE: 20120210
